FAERS Safety Report 8835853 (Version 1)
Quarter: 2012Q4

REPORT INFORMATION
  Report Type: 
  Country: FR (occurrence: FR)
  Receive Date: 20121011
  Receipt Date: 20121011
  Transmission Date: 20130627
  Serious: Yes (Other)
  Sender: FDA-Public Use
  Company Number: FR-ASTELLAS-2012US009989

PATIENT
  Age: 82 Year
  Sex: Female

DRUGS (3)
  1. TARCEVA [Suspect]
     Indication: OVARIAN CANCER
     Dosage: 150 mg, UID/QD
     Route: 048
  2. AMLOR [Concomitant]
     Indication: HYPERTENSION
     Dosage: UNK
     Route: 065
  3. LEVOTHYROX [Concomitant]
     Indication: HYPOTHYROIDISM
     Dosage: UNK
     Route: 065

REACTIONS (3)
  - Off label use [Unknown]
  - Intraocular pressure increased [Not Recovered/Not Resolved]
  - Visual impairment [Unknown]
